FAERS Safety Report 5821332-6 (Version None)
Quarter: 2008Q3

REPORT INFORMATION
  Report Type: 
  Country: None (occurrence: None)
  Receive Date: 20080722
  Receipt Date: 20080722
  Transmission Date: 20090109
  Serious: Yes (Death, Hospitalization, Disabling, Other)
  Sender: FDA-Public Use
  Company Number: None

PATIENT
  Age: 61 Year
  Sex: Female
  Weight: 65.7716 kg

DRUGS (1)
  1. CHANTIX [Suspect]
     Indication: SMOKING CESSATION THERAPY
     Dosage: ONE TABLET TWO TIMES PER DAY PO
     Route: 048
     Dates: start: 20070407, end: 20070520

REACTIONS (4)
  - BACTERAEMIA [None]
  - GASTROINTESTINAL DISORDER [None]
  - INFECTION [None]
  - LIVER DISORDER [None]
